FAERS Safety Report 9660352 (Version 1)
Quarter: 2013Q4

REPORT INFORMATION
  Report Type: Spontaneous
  Country: US (occurrence: US)
  Receive Date: 20131031
  Receipt Date: 20131031
  Transmission Date: 20140711
  Serious: No
  Sender: FDA-Public Use
  Company Number: US-PURDUE-USA-2011-0074189

PATIENT
  Age: 30 Year
  Sex: Male
  Weight: 90.7 kg

DRUGS (1)
  1. OXYCONTIN TABLETS [Suspect]
     Indication: PAIN
     Dosage: 40 MG, Q12H
     Route: 048
     Dates: start: 2008, end: 201010

REACTIONS (1)
  - Constipation [Unknown]
